FAERS Safety Report 25076608 (Version 2)
Quarter: 2025Q3

REPORT INFORMATION
  Report Type: Spontaneous
  Country: JP (occurrence: JP)
  Receive Date: 20250313
  Receipt Date: 20250809
  Transmission Date: 20251020
  Serious: Yes (Hospitalization, Other)
  Sender: ALEXION PHARMACEUTICALS
  Company Number: JP-ASTRAZENECA-250023196_013020_P_1

PATIENT
  Age: 8 Decade
  Sex: Male

DRUGS (1)
  1. TAGRISSO [Suspect]
     Active Substance: OSIMERTINIB
     Indication: Non-small cell lung cancer
     Dosage: 80 MILLIGRAM, QD
     Dates: start: 2024

REACTIONS (4)
  - Tumour marker increased [Unknown]
  - Metastases to liver [Unknown]
  - Nail disorder [Unknown]
  - Pruritus [Unknown]
